FAERS Safety Report 5197400-1 (Version None)
Quarter: 2006Q4

REPORT INFORMATION
  Report Type: 
  Country: None (occurrence: None)
  Receive Date: 20060928
  Receipt Date: 20051019
  Transmission Date: 20070319
  Serious: Yes (Other)
  Sender: FDA-Public Use
  Company Number: HQWYE129820OCT05

PATIENT
  Age: 62 Year
  Sex: Female

DRUGS (1)
  1. RAPAMUNE [Suspect]
     Indication: RENAL TRANSPLANT
     Dates: start: 19960101, end: 20050101

REACTIONS (1)
  - KIDNEY TRANSPLANT REJECTION [None]
